FAERS Safety Report 6474320-3 (Version None)
Quarter: 2009Q4

REPORT INFORMATION
  Report Type: 
  Country: None (occurrence: None)
  Receive Date: 20091204
  Receipt Date: 20091125
  Transmission Date: 20100525
  Serious: Yes (Other)
  Sender: FDA-Public Use
  Company Number: GXKR2009GB12819

PATIENT
  Age: 30 Year
  Sex: Female
  Weight: 100 kg

DRUGS (2)
  1. PHENOXYMETHYLPENICILLIN (NGX) [Suspect]
     Indication: TONSILLITIS
     Dosage: 500 MG, UNK
     Route: 048
     Dates: start: 20091029, end: 20091030
  2. ORAL CONTRACEPTIVE NOS [Concomitant]
     Route: 065

REACTIONS (1)
  - STEVENS-JOHNSON SYNDROME [None]
